FAERS Safety Report 15802197 (Version 1)
Quarter: 2019Q1

REPORT INFORMATION
  Report Type: Spontaneous
  Country: US (occurrence: US)
  Receive Date: 20190108
  Receipt Date: 20190108
  Transmission Date: 20190417
  Serious: Yes (Hospitalization, Other)
  Sender: FDA-Public Use
  Company Number: None

PATIENT
  Age: 77 Year
  Sex: Male
  Weight: 113.4 kg

DRUGS (8)
  1. HUMALOG [Concomitant]
     Active Substance: INSULIN LISPRO
  2. ANASTROZOLE. [Concomitant]
     Active Substance: ANASTROZOLE
  3. LANTUS [Concomitant]
     Active Substance: INSULIN GLARGINE
  4. MAGNESIUM [Concomitant]
     Active Substance: MAGNESIUM
  5. LOSARTAN POTASSIUM 100 MG TABLETS [Suspect]
     Active Substance: LOSARTAN POTASSIUM
     Indication: HYPERTENSION
     Dosage: ?          QUANTITY:1 TABLET(S);?
     Route: 048
     Dates: start: 20120101, end: 20190107
  6. OLMESARTAN [Concomitant]
     Active Substance: OLMESARTAN
  7. LOSARTAN. [Concomitant]
     Active Substance: LOSARTAN
  8. VITAMIN B COMPLEX [Concomitant]
     Active Substance: CYANOCOBALAMIN\DEXPANTHENOL\NIACINAMIDE\PYRIDOXINE HYDROCHLORIDE\RIBOFLAVIN 5^-PHOSPHATE SODIUM\THIAMINE HYDROCHLORIDE\VITAMIN B COMPLEX

REACTIONS (1)
  - Breast cancer [None]

NARRATIVE: CASE EVENT DATE: 20170901
